FAERS Safety Report 10364948 (Version 1)
Quarter: 2014Q3

REPORT INFORMATION
  Report Type: Spontaneous
  Country: US (occurrence: US)
  Receive Date: 20140806
  Receipt Date: 20140806
  Transmission Date: 20150326
  Serious: No
  Sender: FDA-Public Use
  Company Number: US-GLAXOSMITHKLINE-A1040874A

PATIENT
  Age: 59 Year
  Sex: Female

DRUGS (2)
  1. PROVENTIL [Concomitant]
     Active Substance: ALBUTEROL
  2. ADVAIR HFA [Suspect]
     Active Substance: FLUTICASONE PROPIONATE\SALMETEROL XINAFOATE
     Indication: ASTHMA
     Dosage: 2PUFF TWICE PER DAY
     Route: 055
     Dates: start: 2011

REACTIONS (6)
  - Drug administration error [Unknown]
  - Dark circles under eyes [Unknown]
  - Cough [Not Recovered/Not Resolved]
  - Middle insomnia [Unknown]
  - Product quality issue [Unknown]
  - Dyspnoea [Unknown]
